FAERS Safety Report 18038331 (Version 6)
Quarter: 2022Q2

REPORT INFORMATION
  Report Type: Report from Study
  Country: MX (occurrence: MX)
  Receive Date: 20200717
  Receipt Date: 20220609
  Transmission Date: 20220720
  Serious: Yes (Hospitalization, Other)
  Sender: FDA-Public Use
  Company Number: NVSC2020MX200035

PATIENT
  Sex: Female
  Weight: 70 kg

DRUGS (5)
  1. TASIGNA [Suspect]
     Active Substance: NILOTINIB
     Indication: Chronic myeloid leukaemia
     Dosage: UNK, Q12H (2 OF 200 MG EVERY 12 HOURS)
     Route: 048
     Dates: start: 20130906
  2. TASIGNA [Suspect]
     Active Substance: NILOTINIB
     Dosage: 400 MG, Q24H
     Route: 048
     Dates: start: 2015
  3. TASIGNA [Suspect]
     Active Substance: NILOTINIB
     Dosage: 200 MG, Q12H (FROM YEARS AGO)
     Route: 048
  4. TASIGNA [Suspect]
     Active Substance: NILOTINIB
     Dosage: UNK(12 YEARS AGO)
     Route: 048
  5. DIPHENYLHYDANTOIN [Concomitant]
     Active Substance: PHENYTOIN
     Indication: Epilepsy
     Dosage: 250 MG, Q8H (6 YEARS AGO)
     Route: 048

REACTIONS (25)
  - Hepatitis [Not Recovered/Not Resolved]
  - Cholelithiasis [Unknown]
  - Pain [Recovered/Resolved]
  - Cardiac disorder [Not Recovered/Not Resolved]
  - Cardiomegaly [Not Recovered/Not Resolved]
  - Carditis [Not Recovered/Not Resolved]
  - Epilepsy [Not Recovered/Not Resolved]
  - Cerebral ischaemia [Unknown]
  - Blood pressure increased [Not Recovered/Not Resolved]
  - Mitral valve stenosis [Unknown]
  - Platelet count decreased [Not Recovered/Not Resolved]
  - Inappropriate schedule of product administration [Unknown]
  - Movement disorder [Unknown]
  - Abdominal discomfort [Unknown]
  - Mood altered [Unknown]
  - Hypertension [Unknown]
  - Vertigo [Unknown]
  - Blood pressure decreased [Unknown]
  - Weight decreased [Unknown]
  - Vomiting [Unknown]
  - Learning disorder [Unknown]
  - Vision blurred [Unknown]
  - Photopsia [Unknown]
  - Dizziness [Not Recovered/Not Resolved]
  - Visual impairment [Unknown]

NARRATIVE: CASE EVENT DATE: 20130101
